FAERS Safety Report 25163052 (Version 2)
Quarter: 2025Q2

REPORT INFORMATION
  Report Type: Spontaneous
  Country: CH (occurrence: CH)
  Receive Date: 20250404
  Receipt Date: 20250425
  Transmission Date: 20250717
  Serious: Yes (Other)
  Sender: EMD SERONO INC
  Company Number: CH-Merck Healthcare KGaA-2025015578

PATIENT
  Age: 95 Year
  Sex: Female

DRUGS (3)
  1. TEPMETKO [Suspect]
     Active Substance: TEPOTINIB HYDROCHLORIDE
     Indication: Product used for unknown indication
     Dates: start: 20250227, end: 20250401
  2. RISPERIDONE [Suspect]
     Active Substance: RISPERIDONE
     Indication: Anxiety
     Dates: start: 202405
  3. CANDESARTAN [Concomitant]
     Active Substance: CANDESARTAN
     Indication: Hypertension
     Dates: start: 2019, end: 20250409

REACTIONS (6)
  - Acute kidney injury [Unknown]
  - Glomerular filtration rate decreased [Unknown]
  - Cystatin C increased [Unknown]
  - Anaemia [Unknown]
  - Oedema peripheral [Unknown]
  - Blood creatinine increased [Unknown]

NARRATIVE: CASE EVENT DATE: 20250227
